FAERS Safety Report 24147016 (Version 1)
Quarter: 2024Q3

REPORT INFORMATION
  Report Type: Spontaneous
  Country: BR (occurrence: BR)
  Receive Date: 20240729
  Receipt Date: 20240729
  Transmission Date: 20241016
  Serious: Yes (Hospitalization)
  Sender: BAYER
  Company Number: BR-BAYER-2024A108333

PATIENT
  Age: 10 Year
  Sex: Female

DRUGS (1)
  1. GADOBUTROL [Suspect]
     Active Substance: GADOBUTROL
     Indication: Magnetic resonance imaging
     Dosage: UNK, ONCE
     Dates: start: 20240715, end: 20240715

REACTIONS (2)
  - Somnolence [None]
  - Mobility decreased [None]

NARRATIVE: CASE EVENT DATE: 20240715
